FAERS Safety Report 24644885 (Version 2)
Quarter: 2025Q2

REPORT INFORMATION
  Report Type: Spontaneous
  Country: US (occurrence: US)
  Receive Date: 20241121
  Receipt Date: 20250607
  Transmission Date: 20250717
  Serious: No
  Sender: COHERUS
  Company Number: US- Coherus Biosciences Inc.-2024-COH-US000238

PATIENT

DRUGS (1)
  1. UDENYCA [Suspect]
     Active Substance: PEGFILGRASTIM-CBQV
     Indication: Product used for unknown indication
     Route: 058

REACTIONS (3)
  - Skin abrasion [Unknown]
  - Application site erythema [Unknown]
  - Application site bruise [Unknown]
